FAERS Safety Report 20154960 (Version 1)
Quarter: 2021Q4

REPORT INFORMATION
  Report Type: Spontaneous
  Country: CN (occurrence: CN)
  Receive Date: 20211207
  Receipt Date: 20211207
  Transmission Date: 20220303
  Serious: Yes (Other)
  Sender: FDA-Public Use
  Company Number: CN-BAXTER-2021BAX038265

PATIENT
  Age: 71 Year
  Sex: Male
  Weight: 67 kg

DRUGS (11)
  1. CYCLOPHOSPHAMIDE [Suspect]
     Active Substance: CYCLOPHOSPHAMIDE
     Indication: Diffuse large B-cell lymphoma
     Dosage: CYCLOPHOSPHAMIDE 1.2G, D2
     Route: 041
     Dates: start: 20211109, end: 20211109
  2. SODIUM CHLORIDE [Suspect]
     Active Substance: SODIUM CHLORIDE
     Indication: Medication dilution
     Route: 041
     Dates: start: 20211108, end: 20211108
  3. SODIUM CHLORIDE [Suspect]
     Active Substance: SODIUM CHLORIDE
     Route: 041
     Dates: start: 20211109, end: 20211109
  4. PREDNISONE ACETATE [Suspect]
     Active Substance: PREDNISONE ACETATE
     Indication: Diffuse large B-cell lymphoma
     Dosage: TABLETS
     Route: 048
     Dates: start: 20211108, end: 20211111
  5. PREDNISONE ACETATE [Suspect]
     Active Substance: PREDNISONE ACETATE
     Dosage: TABLETS
     Route: 048
     Dates: start: 20211108, end: 20211111
  6. VINCRISTINE SULFATE [Suspect]
     Active Substance: VINCRISTINE SULFATE
     Indication: Diffuse large B-cell lymphoma
     Dosage: VINCRISTINE 2 MG D2
     Route: 041
     Dates: start: 20211109, end: 20211109
  7. EPIRUBICIN [Suspect]
     Active Substance: EPIRUBICIN
     Indication: Diffuse large B-cell lymphoma
     Dosage: PHARMORUBICIN (EPIRUBICIN HYDROCHLORIDE) 100 MG D2
     Route: 041
     Dates: start: 20211109, end: 20211109
  8. RITUXIMAB [Suspect]
     Active Substance: RITUXIMAB
     Indication: Diffuse large B-cell lymphoma
     Route: 041
     Dates: start: 20211108, end: 20211108
  9. MABTHERA [Suspect]
     Active Substance: RITUXIMAB
     Indication: Diffuse large B-cell lymphoma
     Dosage: RITUXIMAB INJECTION (MABTHERA) 600 MG D1
     Route: 041
     Dates: start: 20211108, end: 20211108
  10. RITUXIMAB [Suspect]
     Active Substance: RITUXIMAB
     Indication: Diffuse large B-cell lymphoma
     Route: 041
     Dates: start: 20211108, end: 20211108
  11. SODIUM CHLORIDE [Suspect]
     Active Substance: SODIUM CHLORIDE
     Indication: Medication dilution
     Route: 041
     Dates: start: 20211109, end: 20211109

REACTIONS (3)
  - White blood cell count decreased [Recovering/Resolving]
  - Neutrophil count decreased [Recovering/Resolving]
  - Myelosuppression [Unknown]

NARRATIVE: CASE EVENT DATE: 20211120
